FAERS Safety Report 7789594-6 (Version None)
Quarter: 2011Q3

REPORT INFORMATION
  Report Type: 
  Country: None (occurrence: None)
  Receive Date: 20110930
  Receipt Date: 20110926
  Transmission Date: 20111222
  Serious: Yes (Hospitalization)
  Sender: FDA-Public Use
  Company Number: JP-PFIZER INC-2011195668

PATIENT
  Age: 66 Year
  Sex: Female
  Weight: 55 kg

DRUGS (5)
  1. TAICEZOLIN [Concomitant]
     Indication: MEDIASTINITIS
     Dosage: 1 G, 3X/DAY
     Route: 042
     Dates: start: 20100804, end: 20100805
  2. RIFAMPICIN [Concomitant]
     Indication: INFECTION
     Dosage: 450 MG, 1X/DAY
     Route: 048
     Dates: start: 20100806, end: 20100820
  3. ZYVOX [Suspect]
     Indication: STAPHYLOCOCCAL INFECTION
     Dosage: 600 MG, 2X/DAY
     Route: 042
     Dates: start: 20100806, end: 20100816
  4. VANCOMYCIN [Concomitant]
     Indication: PSEUDOMEMBRANOUS COLITIS
     Dosage: 1 G/DAY
     Route: 042
     Dates: start: 20100815, end: 20100821
  5. MINOCYCLINE HCL [Concomitant]
     Indication: STAPHYLOCOCCAL INFECTION
     Dosage: 100 MG, 2X/DAY
     Route: 042
     Dates: start: 20100806, end: 20100820

REACTIONS (2)
  - PLATELET COUNT DECREASED [None]
  - BLOOD BILIRUBIN INCREASED [None]
